FAERS Safety Report 21688524 (Version 1)
Quarter: 2022Q4

REPORT INFORMATION
  Report Type: Spontaneous
  Country: US (occurrence: US)
  Receive Date: 20221206
  Receipt Date: 20221206
  Transmission Date: 20230113
  Serious: No
  Sender: FDA-Public Use
  Company Number: US-PFIZER INC-202201341080

PATIENT
  Age: 71 Year
  Sex: Male
  Weight: 69.85 kg

DRUGS (1)
  1. PAXLOVID [Suspect]
     Active Substance: NIRMATRELVIR\RITONAVIR
     Indication: COVID-19 treatment
     Dosage: UNK

REACTIONS (6)
  - Throat irritation [Unknown]
  - Vomiting [Unknown]
  - Yellow skin [Unknown]
  - Malaise [Unknown]
  - Asthenia [Unknown]
  - Speech disorder [Unknown]
